FAERS Safety Report 15579365 (Version 2)
Quarter: 2018Q4

REPORT INFORMATION
  Report Type: Spontaneous
  Country: ES (occurrence: ES)
  Receive Date: 20181102
  Receipt Date: 20181106
  Transmission Date: 20190205
  Serious: Yes (Other)
  Sender: FDA-Public Use
  Company Number: ES-009507513-1810ESP012668

PATIENT
  Age: 29 Year
  Sex: Female

DRUGS (5)
  1. PUREGON (FOLLITROPIN BETA) [Suspect]
     Active Substance: FOLLITROPIN
     Dosage: 150 IU INTERNATIONAL UNIT(S)
     Dates: start: 20181016
  2. PUREGON (FOLLITROPIN BETA) [Suspect]
     Active Substance: FOLLITROPIN
     Dosage: 150 IU INTERNATIONAL UNIT(S)
     Dates: start: 20180707
  3. PUREGON (FOLLITROPIN BETA) [Suspect]
     Active Substance: FOLLITROPIN
     Dosage: 150 IU INTERNATIONAL UNIT(S)
     Dates: start: 20181020
  4. PUREGON (FOLLITROPIN BETA) [Suspect]
     Active Substance: FOLLITROPIN
     Dosage: UNK
     Dates: start: 20181021, end: 20181021
  5. PUREGON (FOLLITROPIN BETA) [Suspect]
     Active Substance: FOLLITROPIN
     Dosage: 150 IU INTERNATIONAL UNIT(S)
     Dates: start: 201809

REACTIONS (7)
  - Inappropriate schedule of product administration [Unknown]
  - Nausea [Recovered/Resolved]
  - Ovarian cyst [Unknown]
  - Vertigo [Recovered/Resolved]
  - Depressed mood [Recovered/Resolved]
  - Head discomfort [Unknown]
  - Bradycardia [Recovered/Resolved]

NARRATIVE: CASE EVENT DATE: 2018
